FAERS Safety Report 9840917 (Version 1)
Quarter: 2013Q4

REPORT INFORMATION
  Report Type: Spontaneous
  Country: US (occurrence: None)
  Receive Date: 20131219
  Receipt Date: 20131219
  Transmission Date: 20140711
  Serious: Yes (Death)
  Sender: FDA-Public Use
  Company Number: 163-20785-12093222

PATIENT
  Age: 65 Year
  Sex: Female

DRUGS (14)
  1. THALOMID [Suspect]
     Indication: PLASMA CELL MYELOMA
     Dosage: 50 MG, 14 IN 21 D, PO
     Route: 048
     Dates: start: 20110606, end: 20120604
  2. ACYCLOVIR (ACICLOVIR) (UNKNOWN) [Concomitant]
  3. MELPHALAN (MELPHALAN) (UNKNOWN) [Concomitant]
  4. ALPRAZOLAM (ALPRAZOLAM) (UNKNOWN) (ALPRAZOLAM) [Concomitant]
  5. CYANOCOBALAMIN (CYANOCOBALAMIN) (UNKNOWN) [Concomitant]
  6. DECADRON (DEXAMETHASONE) (UNKNOWN) [Concomitant]
  7. LORTAB (VICODIN) (UNKNOWN) [Concomitant]
  8. NEUPOGEN (FILGRASTIM) (UNKNOWN) [Concomitant]
  9. PREDNISONE (PREDNISONE) (UNKNOWN) [Concomitant]
  10. PROCHLORPERAZINE (PROCHLORPERAZINE) (UNKNOWN)? [Concomitant]
  11. NORVASC (AMLODIPINE BESILATE) (UNKNOWN) [Concomitant]
  12. ASPIRIN (ACETYLSALICYLIC ACID) (ENTERIC-COATED TABLET) [Concomitant]
  13. PROZAC (FLUOXETINE HYDROCHLORIDE) (UNKNOWN) [Concomitant]
  14. SENOKOT (SENNA FRUIT) (UNKNOWN) [Concomitant]

REACTIONS (1)
  - Death [None]
